FAERS Safety Report 8936392 (Version 2)
Quarter: 2012Q4

REPORT INFORMATION
  Report Type: 
  Country: BE (occurrence: BE)
  Receive Date: 20121130
  Receipt Date: 20121211
  Transmission Date: 20130627
  Serious: Yes (Other)
  Sender: FDA-Public Use
  Company Number: BE-PFIZER INC-2012298257

PATIENT
  Age: 70 Year
  Sex: Female
  Weight: 55 kg

DRUGS (1)
  1. LIPITOR [Suspect]
     Indication: HYPERCHOLESTEROLEMIA
     Dosage: 10 mg, 1x/day
     Route: 048
     Dates: start: 2009, end: 20121117

REACTIONS (4)
  - Liver disorder [Recovering/Resolving]
  - Muscle spasms [Recovering/Resolving]
  - Oedema peripheral [Recovering/Resolving]
  - Myalgia [Recovering/Resolving]
